FAERS Safety Report 24732411 (Version 1)
Quarter: 2024Q4

REPORT INFORMATION
  Report Type: Spontaneous
  Country: US (occurrence: US)
  Receive Date: 20241213
  Receipt Date: 20241213
  Transmission Date: 20250115
  Serious: No
  Sender: ELI LILLY AND COMPANY
  Company Number: US-ELI_LILLY_AND_COMPANY-US202412009237

PATIENT
  Age: 70 Year
  Sex: Male

DRUGS (1)
  1. HUMALOG [Suspect]
     Active Substance: INSULIN LISPRO
     Indication: Blood glucose increased
     Dosage: UNK UNK, UNKNOWN
     Route: 065

REACTIONS (1)
  - Incorrect dose administered [Unknown]
